FAERS Safety Report 14819422 (Version 1)
Quarter: 2018Q1

REPORT INFORMATION
  Report Type: Spontaneous
  Country: US (occurrence: US)
  Receive Date: 20180331
  Receipt Date: 20180331
  Transmission Date: 20180509
  Serious: No
  Sender: FDA-Public Use
  Company Number: None

PATIENT
  Age: 30 Year
  Sex: Female
  Weight: 86.18 kg

DRUGS (1)
  1. NEXPLANON [Suspect]
     Active Substance: ETONOGESTREL

REACTIONS (5)
  - Vomiting projectile [None]
  - Homicidal ideation [None]
  - Perinatal depression [None]
  - Violence-related symptom [None]
  - Suicidal ideation [None]

NARRATIVE: CASE EVENT DATE: 20180330
